FAERS Safety Report 11927260 (Version 3)
Quarter: 2016Q2

REPORT INFORMATION
  Report Type: Report from Study
  Country: GB (occurrence: GB)
  Receive Date: 20160119
  Receipt Date: 20160627
  Transmission Date: 20160815
  Serious: Yes (Other)
  Sender: FDA-Public Use
  Company Number: GB-JNJFOC-20160109022

PATIENT
  Age: 60 Year
  Sex: Female

DRUGS (5)
  1. STELARA [Suspect]
     Active Substance: USTEKINUMAB
     Indication: PSORIATIC ARTHROPATHY
     Route: 058
     Dates: start: 20151012
  2. BISOPROLOL [Concomitant]
     Active Substance: BISOPROLOL
     Dosage: ONE TO BE TAKEN IN EACH DAY 28 TABLET LAST ISSUED ON 05-FEB-2016
     Route: 065
  3. DOUBLEBASE [Concomitant]
     Active Substance: ISOPROPYL MYRISTATE\PARAFFIN
     Dosage: USE AS NEEDED 1000 GRAM LAST ISSUED ON LAST ISSUED ON 17-APR-2015
     Route: 065
  4. FERROUS FUMARATE [Concomitant]
     Active Substance: FERROUS FUMARATE
     Dosage: ONE TO BE TAKEN THREE TIMES A DAY LAST ISSUED ON 05-FEB-2016
     Route: 065
  5. PAROXETINE. [Concomitant]
     Active Substance: PAROXETINE
     Dosage: ONE TO BE TAKEN EACH MORNING WITH FOOD, 28 TABLETS ISSUED ON 5-FEB-2016
     Route: 064

REACTIONS (1)
  - Pneumonia [Recovered/Resolved]

NARRATIVE: CASE EVENT DATE: 20160108
